FAERS Safety Report 10612808 (Version 1)
Quarter: 2014Q4

REPORT INFORMATION
  Report Type: Report from Study
  Country: JP (occurrence: JP)
  Receive Date: 20141127
  Receipt Date: 20141127
  Transmission Date: 20150529
  Serious: Yes (Other)
  Sender: FDA-Public Use
  Company Number: PHHY2014JP154786

PATIENT

DRUGS (3)
  1. ZOMETA [Suspect]
     Active Substance: ZOLEDRONIC ACID
     Indication: PLASMA CELL MYELOMA
     Route: 041
  2. ZOMETA [Suspect]
     Active Substance: ZOLEDRONIC ACID
     Indication: BLOOD CALCIUM INCREASED
  3. ZOMETA [Suspect]
     Active Substance: ZOLEDRONIC ACID
     Indication: BONE PAIN

REACTIONS (1)
  - Aortic aneurysm [Unknown]
